FAERS Safety Report 20153634 (Version 4)
Quarter: 2022Q1

REPORT INFORMATION
  Report Type: Report from Study
  Country: TR (occurrence: TR)
  Receive Date: 20211206
  Receipt Date: 20220110
  Transmission Date: 20220423
  Serious: Yes (Hospitalization)
  Sender: FDA-Public Use
  Company Number: TR-ABBVIE-21K-161-4184987-00

PATIENT
  Age: 71 Year
  Sex: Female
  Weight: 60 kg

DRUGS (9)
  1. CARBIDOPA\LEVODOPA [Suspect]
     Active Substance: CARBIDOPA\LEVODOPA
     Indication: Parkinson^s disease
     Dosage: MORNING DOSE (ML): 00.00 CONTINUOUS DOSE (ML): 5.50 EXTRA DOSE (ML): 1.50
     Route: 050
     Dates: start: 20211104, end: 20211128
  2. CARBIDOPA\LEVODOPA [Suspect]
     Active Substance: CARBIDOPA\LEVODOPA
     Dosage: MORNING DOSE (ML): 00.00 CONTINUOUS DOSE (ML): 5.50 EXTRA DOSE (ML): 1.50
     Route: 050
     Dates: start: 20211130, end: 20211220
  3. CARBIDOPA\LEVODOPA [Suspect]
     Active Substance: CARBIDOPA\LEVODOPA
     Dosage: MORNING DOSE (ML): 02.00 CONTINUOUS DOSE (ML): 5.50 EXTRA DOSE (ML): 1.50
     Route: 050
     Dates: start: 20211227
  4. SARS-COV-2 VACCINE [Concomitant]
     Indication: COVID-19 immunisation
     Dosage: FIRST DOSE WAS ADMINISTERED
     Route: 030
     Dates: start: 20210830, end: 20210830
  5. SARS-COV-2 VACCINE [Concomitant]
     Dosage: SECOND DOSE WAS ADMINISTERED
     Route: 030
     Dates: start: 20210930, end: 20210930
  6. EUTHYROX [Concomitant]
     Active Substance: LEVOTHYROXINE SODIUM
     Indication: Thyroid disorder
     Route: 048
     Dates: start: 2020
  7. CANDEXIL PLUS [Concomitant]
     Indication: Hypertension
     Route: 048
     Dates: start: 2016
  8. ELIQUIS [Concomitant]
     Active Substance: APIXABAN
     Indication: Anticoagulant therapy
     Route: 048
     Dates: start: 2019
  9. BENSERAZIDE HYDROCHLORIDE\LEVODOPA [Concomitant]
     Active Substance: BENSERAZIDE HYDROCHLORIDE\LEVODOPA
     Indication: Parkinson^s disease
     Route: 048
     Dates: start: 2011

REACTIONS (2)
  - Chronic obstructive pulmonary disease [Recovered/Resolved]
  - Gastrostomy tube removal [Recovered/Resolved]

NARRATIVE: CASE EVENT DATE: 20211101
